FAERS Safety Report 5471777-1 (Version None)
Quarter: 2007Q3

REPORT INFORMATION
  Report Type: 
  Country: None (occurrence: None)
  Receive Date: 20070928
  Receipt Date: 20070518
  Transmission Date: 20080115
  Serious: No
  Sender: FDA-Public Use
  Company Number: US-BRISTOL-MYERS SQUIBB COMPANY-13785647

PATIENT
  Sex: Female
  Weight: 172 kg

DRUGS (1)
  1. DEFINITY [Suspect]
     Indication: ECHOCARDIOGRAM
     Dosage: GIVEN 1/2 OF DILUTED SOLUTION = PERFLUTREN 1.5 ML DILUTED IN 7 CC OF NORMAL SALINE
     Route: 042
     Dates: start: 20070517

REACTIONS (1)
  - BONE PAIN [None]
